FAERS Safety Report 22122362 (Version 7)
Quarter: 2023Q4

REPORT INFORMATION
  Report Type: Report from Study
  Country: US (occurrence: US)
  Receive Date: 20230321
  Receipt Date: 20231124
  Transmission Date: 20240110
  Serious: Yes (Hospitalization, Other)
  Sender: FDA-Public Use
  Company Number: US-JAZZ PHARMACEUTICALS-2023-US-006235

PATIENT
  Age: 6 Year
  Sex: Male

DRUGS (5)
  1. EPIDIOLEX [Suspect]
     Active Substance: CANNABIDIOL
     Indication: Lennox-Gastaut syndrome
     Dosage: 2 MILLILITER, BID
     Route: 048
  2. EPIDIOLEX [Suspect]
     Active Substance: CANNABIDIOL
     Indication: Status epilepticus
     Dosage: 2.5 MILLILITER, BID(BY G-TUBE)
     Route: 048
  3. KEPPRA XR [Concomitant]
     Active Substance: LEVETIRACETAM
     Indication: Product used for unknown indication
     Dosage: UNK
  4. VIMPAT [Concomitant]
     Active Substance: LACOSAMIDE
     Indication: Product used for unknown indication
     Dosage: UNK
  5. ONFI [Concomitant]
     Active Substance: CLOBAZAM
     Indication: Product used for unknown indication
     Dosage: UNK

REACTIONS (8)
  - Gastrooesophageal reflux disease [Unknown]
  - Gastrointestinal tube insertion [Unknown]
  - Gastrostomy [Unknown]
  - Gastrointestinal tube removal [Unknown]
  - Medical device site infection [Unknown]
  - Seizure [Unknown]
  - Weight decreased [Unknown]
  - Emergency care [Unknown]

NARRATIVE: CASE EVENT DATE: 20230101
